FAERS Safety Report 5059504-3 (Version None)
Quarter: 2006Q3

REPORT INFORMATION
  Report Type: 
  Country: None (occurrence: None)
  Receive Date: 20060724
  Receipt Date: 20060714
  Transmission Date: 20061208
  Serious: Yes (Other)
  Sender: FDA-Public Use
  Company Number: PHBS2006BR10664

PATIENT
  Age: 8 Year
  Sex: Female
  Weight: 26 kg

DRUGS (6)
  1. ZOMETA [Suspect]
     Indication: OSTEOGENESIS IMPERFECTA
     Dosage: 0.1 MG/KG, EVERY 4 MONTHS
     Route: 042
     Dates: start: 20020612
  2. ZOMETA [Suspect]
     Dosage: 0.05 MG/KG, EVERY 6 MONTHS
     Route: 042
  3. IRON [Concomitant]
     Route: 048
  4. CALCAREOUS PHOSPHORIC [Concomitant]
     Route: 048
  5. CHOLECALCIFEROL [Concomitant]
     Dosage: 4000 UI/WEEK
     Route: 065
  6. FLORAL DE BACH [Concomitant]
     Route: 065

REACTIONS (3)
  - BONE GRAFT [None]
  - IMPAIRED HEALING [None]
  - TIBIA FRACTURE [None]
